FAERS Safety Report 24416509 (Version 1)
Quarter: 2024Q4

REPORT INFORMATION
  Report Type: Spontaneous
  Country: CZ (occurrence: CZ)
  Receive Date: 20241009
  Receipt Date: 20241009
  Transmission Date: 20250114
  Serious: Yes (Life-Threatening)
  Sender: MYLAN
  Company Number: CZ-MYLANLABS-2024M1091515

PATIENT
  Age: 53 Year
  Sex: Female

DRUGS (3)
  1. CLOZAPINE [Suspect]
     Active Substance: CLOZAPINE
     Indication: Schizophrenia
     Dosage: UNK
     Route: 065
  2. FLUPENTIXOL DECANOATE [Suspect]
     Active Substance: FLUPENTIXOL DECANOATE
     Indication: Schizophrenia
     Dosage: UNK
     Route: 065
  3. HALOPERIDOL [Suspect]
     Active Substance: HALOPERIDOL
     Indication: Schizophrenia
     Dosage: UNK
     Route: 065

REACTIONS (4)
  - Neutropenia [Recovering/Resolving]
  - Neutrophil count abnormal [Recovered/Resolved]
  - White blood cell disorder [Recovered/Resolved]
  - Treatment noncompliance [Unknown]
